FAERS Safety Report 6001338-7 (Version None)
Quarter: 2008Q4

REPORT INFORMATION
  Report Type: 
  Country: None (occurrence: None)
  Receive Date: 20081215
  Receipt Date: 20081211
  Transmission Date: 20090506
  Serious: Yes (Death)
  Sender: FDA-Public Use
  Company Number: PHHY2008DE31708

PATIENT
  Sex: Female

DRUGS (8)
  1. TEGRETOL [Suspect]
     Indication: DELIRIUM TREMENS
     Dosage: 200 MG, UNK
     Route: 048
     Dates: start: 20060526, end: 20060602
  2. PREDNISOLONE [Concomitant]
     Indication: HAEMOLYTIC ANAEMIA
     Dosage: 60MG
     Route: 048
     Dates: start: 20060422
  3. PREDNISOLONE [Concomitant]
     Dosage: 40MG
     Route: 048
  4. LEGALON [Concomitant]
     Indication: HEPATIC CIRRHOSIS
     Dosage: 140 MG, UNK
     Route: 048
     Dates: start: 20060424
  5. AVELOX [Concomitant]
     Indication: PNEUMONIA
     Dosage: 400 MG, UNK
     Route: 048
  6. KLACID                                  /IRE/ [Concomitant]
     Indication: PNEUMONIA
     Dosage: 500 MG, UNK
  7. LASIX [Concomitant]
     Indication: DIURETIC THERAPY
     Dosage: 40 MG, UNK
     Route: 048
  8. UDC [Concomitant]
     Indication: HEPATIC CIRRHOSIS
     Dosage: 250 MG, UNK
     Route: 048
     Dates: start: 20060424

REACTIONS (9)
  - BRONCHOPNEUMONIA [None]
  - GASTROINTESTINAL EROSION [None]
  - LIP EROSION [None]
  - ORAL MUCOSA EROSION [None]
  - PRURITUS [None]
  - PYREXIA [None]
  - RASH MACULAR [None]
  - RASH PUSTULAR [None]
  - STEVENS-JOHNSON SYNDROME [None]
